FAERS Safety Report 21902259 (Version 1)
Quarter: 2023Q1

REPORT INFORMATION
  Report Type: Spontaneous
  Country: US (occurrence: None)
  Receive Date: 20230124
  Receipt Date: 20230124
  Transmission Date: 20230417
  Serious: No
  Sender: FDA-Public Use
  Company Number: US-USWM, LLC-UWM202207-000025

PATIENT
  Age: 77 Year
  Sex: Female

DRUGS (5)
  1. CORGARD [Suspect]
     Active Substance: NADOLOL
     Indication: Arrhythmia
  2. CORGARD [Suspect]
     Active Substance: NADOLOL
     Dates: start: 20220704
  3. INSULIN NOS [Concomitant]
     Active Substance: INSULIN NOS
     Indication: Diabetes mellitus
     Dosage: 24 UNITS
  4. METFORMIN [Concomitant]
     Active Substance: METFORMIN HYDROCHLORIDE
     Indication: Diabetes mellitus
  5. LOSARTAN [Concomitant]
     Active Substance: LOSARTAN

REACTIONS (3)
  - Hypertension [Not Recovered/Not Resolved]
  - Pain [Unknown]
  - Product use in unapproved indication [Unknown]

NARRATIVE: CASE EVENT DATE: 20220426
